FAERS Safety Report 4789605-6 (Version None)
Quarter: 2005Q4

REPORT INFORMATION
  Report Type: 
  Country: None (occurrence: None)
  Receive Date: 20051004
  Receipt Date: 20050919
  Transmission Date: 20060501
  Serious: Yes (Death, Hospitalization)
  Sender: FDA-Public Use
  Company Number: 2005BI017639

PATIENT
  Age: 41 Year
  Sex: Male
  Weight: 44.4525 kg

DRUGS (2)
  1. AVONEX [Suspect]
     Indication: MULTIPLE SCLEROSIS
     Dosage: 30 UG;QW; IM
     Route: 030
  2. MULTIPLE MEDICATIONS [Concomitant]

REACTIONS (3)
  - CHEST PAIN [None]
  - LEUKAEMIA [None]
  - PNEUMONIA [None]
